FAERS Safety Report 15319047 (Version 1)
Quarter: 2018Q3

REPORT INFORMATION
  Report Type: Spontaneous
  Country: US (occurrence: US)
  Receive Date: 20180820
  Receipt Date: 20180820
  Transmission Date: 20181010
  Serious: No
  Sender: FDA-Public Use
  Company Number: None

PATIENT
  Age: 51 Year
  Sex: Female

DRUGS (1)
  1. EPCLUSA [Suspect]
     Active Substance: SOFOSBUVIR\VELPATASVIR
     Route: 048
     Dates: start: 20180723, end: 20180820

REACTIONS (7)
  - Nausea [None]
  - Diarrhoea [None]
  - Fatigue [None]
  - Contusion [None]
  - Irritability [None]
  - Anger [None]
  - Influenza like illness [None]

NARRATIVE: CASE EVENT DATE: 20180820
